FAERS Safety Report 8911766 (Version 1)
Quarter: 2012Q4

REPORT INFORMATION
  Report Type: 
  Country: US (occurrence: US)
  Receive Date: 20121116
  Receipt Date: 20121116
  Transmission Date: 20130627
  Serious: No
  Sender: FDA-Public Use
  Company Number: US-009507513-1211USA006539

PATIENT
  Sex: Female

DRUGS (1)
  1. AZASITE [Suspect]
     Indication: OCULAR ROSACEA
     Dosage: 1 drop each eye, qpm
     Route: 031
     Dates: start: 20121108

REACTIONS (3)
  - Incorrect storage of drug [Unknown]
  - Poor quality drug administered [Unknown]
  - No adverse event [Unknown]
